FAERS Safety Report 14378530 (Version 1)
Quarter: 2018Q1

REPORT INFORMATION
  Report Type: Report from Study
  Country: CA (occurrence: CA)
  Receive Date: 20180112
  Receipt Date: 20180112
  Transmission Date: 20180509
  Serious: Yes (Other)
  Sender: FDA-Public Use
  Company Number: CA-ROCHE-1959268

PATIENT
  Age: 70 Year
  Sex: Male

DRUGS (9)
  1. ARTHROTEC [Concomitant]
     Active Substance: DICLOFENAC SODIUM\MISOPROSTOL
  2. PHENELZINE SULFATE. [Concomitant]
     Active Substance: PHENELZINE SULFATE
  3. ESBRIET [Suspect]
     Active Substance: PIRFENIDONE
     Route: 048
     Dates: start: 20170701
  4. ESBRIET [Suspect]
     Active Substance: PIRFENIDONE
     Indication: IDIOPATHIC PULMONARY FIBROSIS
     Route: 048
     Dates: start: 20170617
  5. ESBRIET [Suspect]
     Active Substance: PIRFENIDONE
     Route: 048
     Dates: start: 201706
  6. ESBRIET [Suspect]
     Active Substance: PIRFENIDONE
     Dosage: 3 CAPSULES
     Route: 048
     Dates: end: 20171119
  7. NINTEDANIB [Suspect]
     Active Substance: NINTEDANIB
     Indication: PRODUCT USED FOR UNKNOWN INDICATION
     Route: 065
  8. ATIVAN [Concomitant]
     Active Substance: LORAZEPAM
  9. BOTOX [Concomitant]
     Active Substance: ONABOTULINUMTOXINA

REACTIONS (15)
  - Migraine [Not Recovered/Not Resolved]
  - Fatigue [Not Recovered/Not Resolved]
  - Gastric disorder [Not Recovered/Not Resolved]
  - Influenza like illness [Not Recovered/Not Resolved]
  - Osteoarthritis [Unknown]
  - Nausea [Recovered/Resolved]
  - Dyspnoea [Not Recovered/Not Resolved]
  - Vertigo [Unknown]
  - Weight decreased [Recovered/Resolved]
  - Depression [Recovered/Resolved]
  - Cough [Unknown]
  - Oxygen saturation decreased [Unknown]
  - Mobility decreased [Recovering/Resolving]
  - Tension headache [Unknown]
  - Phaeochromocytoma [Unknown]

NARRATIVE: CASE EVENT DATE: 201706
